FAERS Safety Report 18970832 (Version 1)
Quarter: 2021Q1

REPORT INFORMATION
  Report Type: Spontaneous
  Country: IT (occurrence: IT)
  Receive Date: 20210305
  Receipt Date: 20210305
  Transmission Date: 20210420
  Serious: Yes (Other)
  Sender: FDA-Public Use
  Company Number: IT-BRISTOL-MYERS SQUIBB COMPANY-BMS-2021-019200

PATIENT
  Age: 79 Year
  Sex: Male
  Weight: 67 kg

DRUGS (1)
  1. OPDIVO [Suspect]
     Active Substance: NIVOLUMAB
     Indication: MALIGNANT MELANOMA
     Dosage: 240 MILLIGRAM
     Route: 042
     Dates: start: 20190409, end: 20200311

REACTIONS (1)
  - Pulmonary toxicity [Recovered/Resolved with Sequelae]

NARRATIVE: CASE EVENT DATE: 20200310
